FAERS Safety Report 14001592 (Version 1)
Quarter: 2017Q3

REPORT INFORMATION
  Report Type: Report from Study
  Country: US (occurrence: US)
  Receive Date: 20170922
  Receipt Date: 20170922
  Transmission Date: 20171128
  Serious: Yes (Other)
  Sender: FDA-Public Use
  Company Number: US-ELI_LILLY_AND_COMPANY-US201709004266

PATIENT
  Sex: Female

DRUGS (8)
  1. 5 FU [Suspect]
     Active Substance: FLUOROURACIL
     Indication: NEOPLASM MALIGNANT
     Dosage: UNK, UNKNOWN
     Route: 065
     Dates: start: 201301, end: 201306
  2. BENADRYL [Suspect]
     Active Substance: DIPHENHYDRAMINE HYDROCHLORIDE
     Indication: DRUG HYPERSENSITIVITY
     Dosage: UNK, UNKNOWN
     Route: 065
  3. CETUXIMAB. [Suspect]
     Active Substance: CETUXIMAB
     Indication: NEOPLASM MALIGNANT
     Dosage: UNK, UNKNOWN
     Route: 042
     Dates: start: 201301, end: 201306
  4. VASELINE                           /00473501/ [Suspect]
     Active Substance: PARAFFIN
     Indication: DRUG HYPERSENSITIVITY
     Dosage: UNK, UNKNOWN
     Route: 065
  5. FOLFOX [Suspect]
     Active Substance: FLUOROURACIL\LEUCOVORIN CALCIUM\OXALIPLATIN
     Indication: PRODUCT USED FOR UNKNOWN INDICATION
     Dosage: UNK, UNKNOWN
     Route: 065
     Dates: start: 201501, end: 201506
  6. SUNSCREEN [Suspect]
     Active Substance: HOMOSALATE\OCTINOXATE\OCTISALATE\OXYBENZONE\TITANIUM DIOXIDE
     Indication: DRUG HYPERSENSITIVITY
     Dosage: UNK, UNKNOWN
     Route: 065
  7. CETUXIMAB. [Suspect]
     Active Substance: CETUXIMAB
     Dosage: UNK, UNKNOWN
     Route: 042
     Dates: start: 201501, end: 201506
  8. CETUXIMAB. [Suspect]
     Active Substance: CETUXIMAB
     Dosage: UNK, UNKNOWN
     Route: 042
     Dates: start: 201705, end: 201707

REACTIONS (7)
  - Drug hypersensitivity [Not Recovered/Not Resolved]
  - Chemical burn [None]
  - Pyrexia [None]
  - Dry skin [None]
  - Urticaria [None]
  - Skin tightness [None]
  - Vision blurred [None]
